FAERS Safety Report 14726903 (Version 1)
Quarter: 2018Q2

REPORT INFORMATION
  Report Type: Spontaneous
  Country: US (occurrence: US)
  Receive Date: 20180406
  Receipt Date: 20180406
  Transmission Date: 20180711
  Serious: No
  Sender: FDA-Public Use
  Company Number: US-BAYER-2018-060851

PATIENT
  Age: 57 Year
  Sex: Female

DRUGS (1)
  1. ESTRADIOL HEMIHYDRATE (PATCH) [Suspect]
     Active Substance: ESTRADIOL HEMIHYDRATE
     Dosage: UNK
     Route: 062
     Dates: start: 20180312

REACTIONS (4)
  - Device material issue [None]
  - Application site rash [Recovering/Resolving]
  - Product adhesion issue [None]
  - Skin discolouration [None]

NARRATIVE: CASE EVENT DATE: 201803
